FAERS Safety Report 5360766-3 (Version None)
Quarter: 2007Q2

REPORT INFORMATION
  Report Type: 
  Country: None (occurrence: None)
  Receive Date: 20070618
  Receipt Date: 20070607
  Transmission Date: 20071010
  Serious: Yes (Hospitalization, Disabling)
  Sender: FDA-Public Use
  Company Number: US-JNJFOC-20061203825

PATIENT
  Sex: Male
  Weight: 80.74 kg

DRUGS (9)
  1. LEVAQUIN [Suspect]
     Indication: BRONCHITIS
  2. PREDNISONE TAB [Suspect]
     Indication: RHEUMATOID ARTHRITIS
  3. REMICADE [Concomitant]
  4. HYDROCHLOROTHIAZIDE [Concomitant]
  5. RANITIDINE [Concomitant]
  6. COZAAR [Concomitant]
  7. ASPIRIN [Concomitant]
  8. METHOTREXATE [Concomitant]
  9. NORVASC [Concomitant]

REACTIONS (1)
  - TENDON RUPTURE [None]
